FAERS Safety Report 6193281-8 (Version None)
Quarter: 2009Q2

REPORT INFORMATION
  Report Type: 
  Country: None (occurrence: None)
  Receive Date: 20090518
  Receipt Date: 20090508
  Transmission Date: 20091009
  Serious: Yes (Hospitalization, Other)
  Sender: FDA-Public Use
  Company Number: D0061456A

PATIENT
  Sex: Female

DRUGS (1)
  1. ARIXTRA [Suspect]
     Dosage: 5MG PER DAY
     Route: 065
     Dates: start: 20090428, end: 20090429

REACTIONS (7)
  - CIRCULATORY COLLAPSE [None]
  - CONVULSION [None]
  - DIARRHOEA [None]
  - DYSKINESIA [None]
  - FALL [None]
  - FEELING HOT [None]
  - GRUNTING [None]
